FAERS Safety Report 12603643 (Version 2)
Quarter: 2016Q3

REPORT INFORMATION
  Report Type: Spontaneous
  Country: CN (occurrence: CN)
  Receive Date: 20160728
  Receipt Date: 20160803
  Transmission Date: 20161109
  Serious: Yes (Other)
  Sender: FDA-Public Use
  Company Number: CN-SA-2016SA133683

PATIENT
  Age: 42 Year
  Sex: Female

DRUGS (2)
  1. STILNOX [Suspect]
     Active Substance: ZOLPIDEM TARTRATE
     Indication: INSOMNIA
     Route: 048
     Dates: start: 20150418
  2. ESTAZOLAM. [Concomitant]
     Active Substance: ESTAZOLAM
     Indication: INSOMNIA
     Route: 065

REACTIONS (6)
  - Delirium [Recovered/Resolved]
  - Hallucination [Recovered/Resolved]
  - Agitation [Recovered/Resolved]
  - Illusion [Recovered/Resolved]
  - Mental disorder [Recovered/Resolved]
  - Logorrhoea [Recovered/Resolved]

NARRATIVE: CASE EVENT DATE: 20150418
